FAERS Safety Report 22240447 (Version 1)
Quarter: 2023Q2

REPORT INFORMATION
  Report Type: Spontaneous
  Country: US (occurrence: None)
  Receive Date: 20230421
  Receipt Date: 20230421
  Transmission Date: 20230722
  Serious: Yes (Other)
  Sender: FDA-Public Use
  Company Number: None

PATIENT
  Age: 26 Year
  Sex: Female

DRUGS (2)
  1. KOSAS REVEALER SKIN-IMPROVING FOUNDATION BROAD SPECTRUM SPF-25 - DEEP [Suspect]
     Active Substance: ZINC OXIDE
     Indication: Product used for unknown indication
     Dates: start: 20230420, end: 20230421
  2. PROZAC [Concomitant]
     Active Substance: FLUOXETINE HYDROCHLORIDE

REACTIONS (1)
  - Application site burn [None]

NARRATIVE: CASE EVENT DATE: 20230420
